FAERS Safety Report 9845214 (Version 2)
Quarter: 2014Q1

REPORT INFORMATION
  Report Type: Spontaneous
  Country: IT (occurrence: IT)
  Receive Date: 20140127
  Receipt Date: 20140210
  Transmission Date: 20141002
  Serious: Yes (Other)
  Sender: FDA-Public Use
  Company Number: IT-SA-2014SA006442

PATIENT
  Age: 76 Year
  Sex: Female
  Weight: 60 kg

DRUGS (10)
  1. PLAVIX [Suspect]
     Indication: ARTERIAL THROMBOSIS
     Route: 048
     Dates: start: 20120101, end: 20140115
  2. VYTORIN [Suspect]
     Indication: HYPERCHOLESTEROLAEMIA
     Route: 048
     Dates: start: 20130101, end: 20140115
  3. LANSOX [Concomitant]
     Dosage: STRENGTH: 30 MG
  4. MONOKET [Concomitant]
     Dosage: STRENGTH: 20 MG
  5. LASIX [Concomitant]
     Dosage: STRENGTH: 25 MG
  6. ISOPTIN [Concomitant]
     Dosage: STRENGTH: 40 MG
  7. VASTAREL [Concomitant]
     Dosage: STRENGTH: 20 MG
  8. APROVEL [Concomitant]
     Dosage: STRENGTH: 150 MG
  9. APIDRA [Concomitant]
     Dosage: STRENGTH: 100U/ML
     Route: 058
  10. LANTUS [Concomitant]
     Dosage: STRENGTH: 100 U/ML
     Route: 058

REACTIONS (2)
  - Macroglossia [Recovering/Resolving]
  - Tongue oedema [Recovering/Resolving]
